FAERS Safety Report 8396924-3 (Version None)
Quarter: 2012Q2

REPORT INFORMATION
  Report Type: 
  Country: None (occurrence: None)
  Receive Date: 20120530
  Receipt Date: 20120522
  Transmission Date: 20120825
  Serious: Yes (Death)
  Sender: FDA-Public Use
  Company Number: US-INCYTE CORPORATION-2012IN000864

PATIENT
  Sex: Male

DRUGS (6)
  1. TRAMADOL HCL [Concomitant]
     Dosage: 200 MG, UNK
  2. ALLOPURINOL [Concomitant]
     Dosage: 100 MG, UNK
  3. HYDROXYUREA [Concomitant]
     Dosage: 500 MG, UNK
  4. DETROL LA [Concomitant]
     Dosage: 4 MG, UNK
  5. OMEPRAZOLE [Concomitant]
     Dosage: 20.6 MG, UNK
  6. JAKAFI [Suspect]
     Dosage: 20 MG, BID
     Route: 048

REACTIONS (1)
  - DEATH [None]
